FAERS Safety Report 6543922-8 (Version None)
Quarter: 2010Q1

REPORT INFORMATION
  Report Type: 
  Country: None (occurrence: None)
  Receive Date: 20100120
  Receipt Date: 20100107
  Transmission Date: 20100710
  Serious: Yes (Life-Threatening, Disabling, Other)
  Sender: FDA-Public Use
  Company Number: FR-TEVA-213199ISR

PATIENT
  Sex: Male

DRUGS (5)
  1. COPAXONE [Suspect]
     Indication: MULTIPLE SCLEROSIS
     Route: 058
     Dates: start: 20030101
  2. ESOMEPRAZOLE MAGNESIUM [Concomitant]
  3. POTASSIUM CHLORIDE [Concomitant]
  4. TRAMADOL HYDROCHLORIDE [Concomitant]
  5. GABAPENTIN [Concomitant]
     Indication: NEURALGIA
     Route: 048
     Dates: start: 20090401

REACTIONS (2)
  - ABDOMINAL PAIN [None]
  - OESOPHAGEAL CARCINOMA [None]
